FAERS Safety Report 8835268 (Version 2)
Quarter: 2012Q4

REPORT INFORMATION
  Report Type: 
  Country: JP (occurrence: JP)
  Receive Date: 20121011
  Receipt Date: 20121011
  Transmission Date: 20130627
  Serious: Yes (Other)
  Sender: FDA-Public Use
  Company Number: JP-ROCHE-1143329

PATIENT
  Age: 30 Year
  Sex: Male

DRUGS (7)
  1. CELLCEPT [Suspect]
     Indication: NEPHROTIC SYNDROME
     Dosage: Dosage is uncertain.
     Route: 048
  2. CELLCEPT [Suspect]
     Indication: OFF LABEL USE
  3. RITUXIMAB [Concomitant]
     Indication: NEPHROTIC SYNDROME
     Dosage: Four times
     Route: 065
     Dates: start: 201104
  4. CICLOSPORIN [Concomitant]
     Indication: NEPHROTIC SYNDROME
     Dosage: Dosage is uncertain.
     Route: 065
  5. MIZORIBINE [Concomitant]
     Indication: NEPHROTIC SYNDROME
     Dosage: Dosage is uncertain.
     Route: 065
  6. PREDNISOLONE [Concomitant]
     Indication: NEPHROTIC SYNDROME
     Route: 065
  7. PREDNISOLONE [Concomitant]
     Indication: NEPHROTIC SYNDROME
     Route: 065

REACTIONS (2)
  - Osteonecrosis [Unknown]
  - Nephrotic syndrome [Unknown]
